FAERS Safety Report 18910942 (Version 1)
Quarter: 2021Q1

REPORT INFORMATION
  Report Type: Spontaneous
  Country: US (occurrence: US)
  Receive Date: 20210218
  Receipt Date: 20210218
  Transmission Date: 20210420
  Serious: No
  Sender: FDA-Public Use
  Company Number: US-LUPIN PHARMACEUTICALS INC.-2021-01916

PATIENT
  Age: 28 Year
  Sex: Female

DRUGS (4)
  1. PREDNISONE. [Suspect]
     Active Substance: PREDNISONE
     Indication: ERYTHEMA NODOSUM
     Dosage: UNK
     Route: 048
  2. TRIAMCINOLONE [Suspect]
     Active Substance: TRIAMCINOLONE
     Indication: ERYTHEMA NODOSUM
     Dosage: UNK
     Route: 030
  3. DAPSONE. [Suspect]
     Active Substance: DAPSONE
     Indication: ERYTHEMA NODOSUM
     Dosage: 100 MILLIGRAM, QD
     Route: 065
  4. HYDROXYCHLOROQUINE [Suspect]
     Active Substance: HYDROXYCHLOROQUINE
     Indication: ERYTHEMA NODOSUM
     Dosage: 400 MILLIGRAM, QD
     Route: 065

REACTIONS (3)
  - Drug ineffective [Unknown]
  - Weight increased [Unknown]
  - Blood glucose increased [Unknown]
